FAERS Safety Report 20452722 (Version 1)
Quarter: 2022Q1

REPORT INFORMATION
  Report Type: Spontaneous
  Country: JP (occurrence: JP)
  Receive Date: 20220210
  Receipt Date: 20220210
  Transmission Date: 20220423
  Serious: Yes (Hospitalization, Other)
  Sender: FDA-Public Use
  Company Number: JP-BRISTOL-MYERS SQUIBB COMPANY-BMS-2021-141711

PATIENT
  Age: 70 Year
  Sex: Male
  Weight: 50.4 kg

DRUGS (10)
  1. YERVOY [Suspect]
     Active Substance: IPILIMUMAB
     Indication: Pleural mesothelioma malignant
     Dosage: 60 MILLIGRAM, ONE TIME DOSE
     Route: 041
     Dates: start: 20210803, end: 20210803
  2. YERVOY [Suspect]
     Active Substance: IPILIMUMAB
     Dosage: 60 MILLIGRAM, ONE TIME DOSE
     Route: 041
     Dates: start: 20210930, end: 20210930
  3. YERVOY [Suspect]
     Active Substance: IPILIMUMAB
     Dosage: 60 MILLIGRAM, ONE TIME DOSE
     Route: 041
     Dates: start: 20211119, end: 20211119
  4. OPDIVO [Suspect]
     Active Substance: NIVOLUMAB
     Indication: Pleural mesothelioma malignant
     Dosage: 360 MILLIGRAM, ONE TIME DOSE
     Route: 041
     Dates: start: 20210803, end: 20210803
  5. OPDIVO [Suspect]
     Active Substance: NIVOLUMAB
     Dosage: 360 MILLIGRAM, ONE TIME DOSE
     Route: 041
     Dates: start: 20210902, end: 20210902
  6. OPDIVO [Suspect]
     Active Substance: NIVOLUMAB
     Dosage: 360 MILLIGRAM, ONE TIME DOSE
     Route: 041
     Dates: start: 20210930, end: 20210930
  7. OPDIVO [Suspect]
     Active Substance: NIVOLUMAB
     Dosage: 360 MILLIGRAM, ONE TIME DOSE
     Route: 041
     Dates: start: 20211119, end: 20211119
  8. OPDIVO [Suspect]
     Active Substance: NIVOLUMAB
     Dosage: 360 MILLIGRAM, ONE TIME DOSE
     Route: 041
     Dates: start: 20211216, end: 20211216
  9. VONOPRAZAN FUMARATE [Concomitant]
     Active Substance: VONOPRAZAN FUMARATE
     Indication: Product used for unknown indication
     Dosage: AFTER BREAKFAST
     Route: 048
     Dates: start: 20210813
  10. LOXOPROFEN SODIUM [Concomitant]
     Active Substance: LOXOPROFEN SODIUM
     Indication: Product used for unknown indication
     Dosage: AFTER EVERY MEAL
     Route: 048
     Dates: start: 20210902

REACTIONS (6)
  - Vogt-Koyanagi-Harada disease [Recovering/Resolving]
  - Malignant neoplasm progression [Unknown]
  - Retinal haemorrhage [Unknown]
  - Papilloedema [Unknown]
  - Headache [Unknown]
  - Visual acuity reduced [Unknown]

NARRATIVE: CASE EVENT DATE: 20211021
